FAERS Safety Report 7142271-7 (Version None)
Quarter: 2010Q4

REPORT INFORMATION
  Report Type: 
  Country: None (occurrence: None)
  Receive Date: 20101207
  Receipt Date: 20101201
  Transmission Date: 20110411
  Serious: No
  Sender: FDA-Public Use
  Company Number: US-PFIZER INC-2010161990

PATIENT
  Sex: Female
  Weight: 79.4 kg

DRUGS (8)
  1. PRISTIQ [Suspect]
     Indication: ANXIETY
     Dosage: 50 MG, UNK
     Route: 048
     Dates: start: 20101001
  2. PRISTIQ [Suspect]
     Indication: STRESS
  3. PRISTIQ [Suspect]
     Indication: OBSESSIVE-COMPULSIVE DISORDER
  4. PROZAC [Suspect]
     Indication: ANXIETY
     Dosage: 20 MG, UNK
     Route: 048
     Dates: start: 20101101, end: 20101101
  5. PROZAC [Suspect]
     Indication: STRESS
  6. PROZAC [Suspect]
     Indication: OBSESSIVE-COMPULSIVE DISORDER
  7. XANAX [Concomitant]
     Indication: ANXIETY
     Dosage: UNK
     Route: 048
  8. XANAX [Concomitant]
     Indication: DEPRESSION

REACTIONS (4)
  - EMOTIONAL DISORDER [None]
  - NERVOUSNESS [None]
  - OBSESSIVE THOUGHTS [None]
  - VISION BLURRED [None]
